FAERS Safety Report 5420495-4 (Version None)
Quarter: 2007Q3

REPORT INFORMATION
  Report Type: 
  Country: None (occurrence: None)
  Receive Date: 20070718
  Receipt Date: 20061211
  Transmission Date: 20080115
  Serious: Yes (Other)
  Sender: FDA-Public Use
  Company Number: 2006081519

PATIENT
  Age: 59 Year
  Sex: Male
  Weight: 93.9 kg

DRUGS (3)
  1. CELEBREX [Suspect]
     Indication: PAIN
     Dosage: 600 MG (200 MG, 3 IN 1 D)
     Dates: start: 20010430, end: 20050701
  2. ASPIRIN [Concomitant]
  3. BEXTRA [Concomitant]

REACTIONS (1)
  - CEREBROVASCULAR DISORDER [None]
